FAERS Safety Report 5993075-X (Version None)
Quarter: 2008Q4

REPORT INFORMATION
  Report Type: 
  Country: None (occurrence: None)
  Receive Date: 20081212
  Receipt Date: 20081209
  Transmission Date: 20090506
  Serious: Yes (Death)
  Sender: FDA-Public Use
  Company Number: AU-BRISTOL-MYERS SQUIBB COMPANY-14437792

PATIENT
  Age: 55 Year
  Sex: Female

DRUGS (7)
  1. CARBOPLATIN [Suspect]
     Indication: NEOPLASM MALIGNANT
     Route: 042
     Dates: start: 20061212
  2. ETOPOSIDE [Suspect]
     Indication: NEOPLASM MALIGNANT
     Dosage: FORM = INJ. START DATE 12DEC06
     Route: 042
     Dates: start: 20061212, end: 20061214
  3. IFOSFAMIDE [Suspect]
     Indication: NEOPLASM MALIGNANT
     Dosage: START DATE 13DEC06
     Dates: start: 20061213, end: 20061214
  4. CYCLIZINE [Suspect]
     Indication: NAUSEA
     Dates: start: 20061212, end: 20061215
  5. CYCLIZINE [Suspect]
     Indication: VOMITING
     Dates: start: 20061212, end: 20061215
  6. DOTHIEPIN HYDROCHLORIDE [Suspect]
     Route: 048
     Dates: end: 20061215
  7. FLUCONAZOLE [Suspect]
     Indication: CANDIDIASIS
     Route: 048
     Dates: start: 20061210, end: 20061215

REACTIONS (2)
  - AGITATION [None]
  - CONFUSIONAL STATE [None]
